FAERS Safety Report 6535803-0 (Version None)
Quarter: 2010Q1

REPORT INFORMATION
  Report Type: 
  Country: None (occurrence: None)
  Receive Date: 20100106
  Receipt Date: 20091217
  Transmission Date: 20100710
  Serious: Yes (Other)
  Sender: FDA-Public Use
  Company Number: 464819

PATIENT
  Age: 2 Year
  Sex: Male

DRUGS (4)
  1. VINCRISTINE [Suspect]
     Dosage: UNKNOWN, UNKNOWN, INTRAVENOUS
     Route: 042
     Dates: start: 20070408
  2. VFEND [Suspect]
     Indication: FUNGAL INFECTION
     Dosage: 200 MG, UNKNOWN, ORAL
     Route: 048
     Dates: start: 20070219, end: 20070410
  3. (CO-TRIMOXAZOLE) [Concomitant]
  4. (POTASSIUM CHLORIDE) [Concomitant]

REACTIONS (4)
  - ALANINE AMINOTRANSFERASE INCREASED [None]
  - BLOOD ALKALINE PHOSPHATASE INCREASED [None]
  - BLOOD BILIRUBIN INCREASED [None]
  - DRUG TOXICITY [None]
